FAERS Safety Report 10576527 (Version 1)
Quarter: 2014Q4

REPORT INFORMATION
  Report Type: Spontaneous
  Country: US (occurrence: US)
  Receive Date: 20141111
  Receipt Date: 20141111
  Transmission Date: 20150529
  Serious: Yes (Other)
  Sender: FDA-Public Use
  Company Number: US-TEVA-520662USA

PATIENT
  Sex: Female

DRUGS (1)
  1. COPAXONE [Suspect]
     Active Substance: GLATIRAMER ACETATE
     Indication: MULTIPLE SCLEROSIS
     Dosage: DOSE AND FREQUENCY NOT PROVIDED
     Route: 065
     Dates: start: 19970702, end: 20011201

REACTIONS (5)
  - Injection site atrophy [Unknown]
  - Multiple sclerosis [Unknown]
  - Drug ineffective [Unknown]
  - Memory impairment [Unknown]
  - Central nervous system lesion [Unknown]
